FAERS Safety Report 6667434-6 (Version None)
Quarter: 2010Q2

REPORT INFORMATION
  Report Type: 
  Country: None (occurrence: None)
  Receive Date: 20100401
  Receipt Date: 20100329
  Transmission Date: 20101027
  Serious: Yes (Life-Threatening, Disabling, Other)
  Sender: FDA-Public Use
  Company Number: 2010SP007363

PATIENT
  Sex: Female

DRUGS (3)
  1. SAPHRIS [Suspect]
     Indication: BIPOLAR DISORDER
     Dosage: 5 MG;HS;PO
     Route: 048
  2. SAPHRIS [Suspect]
     Indication: MANIA
     Dosage: 5 MG;HS;PO
     Route: 048
  3. PROZAC (CON.) [Concomitant]

REACTIONS (2)
  - REFUSAL OF TREATMENT BY RELATIVE [None]
  - SUICIDAL IDEATION [None]
